FAERS Safety Report 11845809 (Version 2)
Quarter: 2015Q4

REPORT INFORMATION
  Report Type: Spontaneous
  Country: US (occurrence: US)
  Receive Date: 20151217
  Receipt Date: 20151223
  Transmission Date: 20160305
  Serious: Yes (Hospitalization, Other)
  Sender: FDA-Public Use
  Company Number: US-PFIZER INC-2015445698

PATIENT
  Age: 46 Year
  Sex: Female
  Weight: 72.56 kg

DRUGS (6)
  1. SYNTHROID [Concomitant]
     Active Substance: LEVOTHYROXINE SODIUM
     Indication: THYROID CANCER
     Dosage: UNK
  2. SOMA [Concomitant]
     Active Substance: CARISOPRODOL
     Indication: PAIN
     Dosage: UNK
  3. CHANTIX [Suspect]
     Active Substance: VARENICLINE TARTRATE
     Dosage: UNK
     Dates: start: 201208, end: 2012
  4. CHANTIX [Suspect]
     Active Substance: VARENICLINE TARTRATE
     Indication: SMOKING CESSATION THERAPY
     Dosage: ONE IN THE MORNING AND ONE AT NIGHT
     Dates: start: 2009, end: 2010
  5. XANAX [Concomitant]
     Active Substance: ALPRAZOLAM
     Indication: EMOTIONAL DISORDER
     Dosage: UNK
  6. DILAUDID [Concomitant]
     Active Substance: HYDROMORPHONE HYDROCHLORIDE
     Indication: PAIN
     Dosage: UNK, AS NEEDED

REACTIONS (22)
  - Paranoia [Not Recovered/Not Resolved]
  - Anger [Unknown]
  - Malnutrition [Unknown]
  - Agitation [Unknown]
  - Aggression [Not Recovered/Not Resolved]
  - Anxiety [Unknown]
  - Depression [Unknown]
  - Obsessive-compulsive disorder [Not Recovered/Not Resolved]
  - Hostility [Not Recovered/Not Resolved]
  - Impulse-control disorder [Unknown]
  - Abdominal pain [Unknown]
  - Colon cancer [Unknown]
  - Pulmonary mass [Not Recovered/Not Resolved]
  - Emphysema [Unknown]
  - Vomiting [Unknown]
  - Homicidal ideation [Not Recovered/Not Resolved]
  - Irritability [Unknown]
  - Hernia [Unknown]
  - Social avoidant behaviour [Not Recovered/Not Resolved]
  - Abdominal discomfort [Unknown]
  - Cerebral disorder [Not Recovered/Not Resolved]
  - Abnormal dreams [Unknown]

NARRATIVE: CASE EVENT DATE: 2009
